FAERS Safety Report 14025400 (Version 1)
Quarter: 2017Q3

REPORT INFORMATION
  Report Type: Report from Study
  Country: NL (occurrence: NL)
  Receive Date: 20170929
  Receipt Date: 20170929
  Transmission Date: 20171128
  Serious: Yes (Hospitalization)
  Sender: FDA-Public Use
  Company Number: NL-MYLANLABS-2017M1060676

PATIENT
  Age: 21 Year
  Sex: Male

DRUGS (1)
  1. METHYLPHENIDATE. [Suspect]
     Active Substance: METHYLPHENIDATE
     Indication: PRODUCT USED FOR UNKNOWN INDICATION
     Dosage: 11 MG/KG; MODIFIED RELEASE
     Route: 048

REACTIONS (2)
  - Toxicity to various agents [Recovered/Resolved]
  - No adverse event [Recovered/Resolved]
